FAERS Safety Report 12300404 (Version 1)
Quarter: 2016Q2

REPORT INFORMATION
  Report Type: Spontaneous
  Country: NO (occurrence: None)
  Receive Date: 20160421
  Receipt Date: 20160421
  Transmission Date: 20160815
  Serious: Yes (Hospitalization, Other)
  Sender: FDA-Public Use
  Company Number: 8005152

PATIENT
  Age: 26 Year
  Sex: Female

DRUGS (1)
  1. GONAL-F [Suspect]
     Active Substance: FOLLITROPIN
     Indication: INFERTILITY
     Dates: start: 1999, end: 199912

REACTIONS (7)
  - Cardiac failure [None]
  - Chronic kidney disease [None]
  - Lung transplant [None]
  - Respiratory failure [None]
  - Pulmonary arterial hypertension [None]
  - Meningitis viral [None]
  - Endometriosis [None]

NARRATIVE: CASE EVENT DATE: 20000221
